FAERS Safety Report 9769316 (Version 2)
Quarter: 2014Q2

REPORT INFORMATION
  Report Type: Report from Study
  Country: JP (occurrence: JP)
  Receive Date: 20131218
  Receipt Date: 20140530
  Transmission Date: 20141212
  Serious: Yes (Other)
  Sender: FDA-Public Use
  Company Number: PHHY2013JP146225

PATIENT
  Age: 77 Year
  Sex: Female

DRUGS (15)
  1. EXELON [Suspect]
     Indication: DEMENTIA ALZHEIMER^S TYPE
     Dosage: 4.5 MG, DAILY
     Route: 062
     Dates: start: 20121019, end: 20121115
  2. EXELON [Suspect]
     Dosage: 9 MG, DAILY
     Route: 062
     Dates: start: 20121116, end: 20121213
  3. EXELON [Suspect]
     Dosage: 13.5 MG, DAILY
     Route: 062
     Dates: start: 20121214, end: 20130109
  4. EXELON [Suspect]
     Dosage: 18 MG, DAILY
     Route: 062
     Dates: start: 20130110, end: 20130128
  5. NITOROL [Concomitant]
     Indication: HYPERTENSION
     Dosage: 20 MG, UNK
     Route: 048
  6. NITOROL [Concomitant]
     Indication: ANGINA PECTORIS
  7. DIOVAN [Concomitant]
     Indication: HYPERTENSION
     Dosage: 80 MG, UNK
     Route: 048
  8. AMLODIN [Concomitant]
     Indication: HYPERTENSION
     Dosage: 5 MG, UNK
     Route: 048
  9. LENDORMIN [Concomitant]
     Indication: INSOMNIA
     Dosage: 0.3 MG, UNK
     Route: 048
  10. LUNESTA [Concomitant]
     Indication: INSOMNIA
     Dosage: 2 MG, UNK
     Route: 048
     Dates: start: 20120630
  11. MARZULENE [Concomitant]
     Indication: GASTRITIS
     Route: 048
     Dates: start: 20121116
  12. MEMARY [Concomitant]
     Indication: DEMENTIA ALZHEIMER^S TYPE
     Dosage: 5 MG, UNK
     Route: 048
     Dates: start: 20121211
  13. MEMARY [Concomitant]
     Dosage: 10 MG, UNK
     Route: 048
  14. MEMARY [Concomitant]
     Dosage: 15 MG, UNK
     Route: 048
  15. MEMARY [Concomitant]
     Dosage: 20 MG, UNK
     Route: 048

REACTIONS (5)
  - Ovarian cancer [Unknown]
  - Anaemia [Not Recovered/Not Resolved]
  - Red blood cell count decreased [Unknown]
  - Dementia [Not Recovered/Not Resolved]
  - Disease progression [Not Recovered/Not Resolved]
